FAERS Safety Report 6037783-3 (Version None)
Quarter: 2009Q1

REPORT INFORMATION
  Report Type: 
  Country: None (occurrence: None)
  Receive Date: 20090113
  Receipt Date: 20090108
  Transmission Date: 20090719
  Serious: Yes (Other)
  Sender: FDA-Public Use
  Company Number: CHPA2008GB22516

PATIENT
  Age: 67 Year
  Sex: Male

DRUGS (3)
  1. SCOPODERM TTS (NCH) (HYOSCINE HYDROBROMIDE) MEMBRANE CONT. TRANS THERA [Suspect]
     Indication: SALIVARY HYPERSECRETION
     Dosage: 105 MG, TRANSDERMAL
     Route: 062
     Dates: start: 20081118, end: 20081122
  2. VALPROATE SODIUM [Concomitant]
  3. MEMANTINE HCL [Concomitant]

REACTIONS (4)
  - CONVULSION [None]
  - INCORRECT DOSE ADMINISTERED [None]
  - OFF LABEL USE [None]
  - SOMNOLENCE [None]
